FAERS Safety Report 16740995 (Version 1)
Quarter: 2019Q3

REPORT INFORMATION
  Report Type: Spontaneous
  Country: US (occurrence: US)
  Receive Date: 20190709
  Receipt Date: 20190709
  Transmission Date: 20191005
  Serious: Yes (Hospitalization)
  Sender: FDA-Public Use
  Company Number: None

PATIENT
  Sex: Female

DRUGS (1)
  1. SUTENT [Suspect]
     Active Substance: SUNITINIB MALATE
     Indication: RENAL CANCER
     Dosage: ?          OTHER FREQUENCY:DAILY 14 DYS, OFF ;?
     Route: 048
     Dates: start: 20190622

REACTIONS (4)
  - Arthralgia [None]
  - Drug hypersensitivity [None]
  - Hypertension [None]
  - Hypersensitivity [None]
